FAERS Safety Report 11130060 (Version 4)
Quarter: 2017Q1

REPORT INFORMATION
  Report Type: Report from Study
  Country: VE (occurrence: VE)
  Receive Date: 20150521
  Receipt Date: 20170316
  Transmission Date: 20170428
  Serious: Yes (Hospitalization)
  Sender: FDA-Public Use
  Company Number: PHHY2015VE059550

PATIENT
  Age: 11 Year
  Sex: Male

DRUGS (8)
  1. EXJADE [Suspect]
     Active Substance: DEFERASIROX
     Indication: IRON OVERLOAD
     Dosage: 750 MG, QD
     Route: 048
     Dates: start: 20150228
  2. GUAYATEN [Concomitant]
     Indication: HYPERTENSION
     Dosage: 30 MG, Q8H
     Route: 065
     Dates: start: 201505
  3. GUAYATEN [Concomitant]
     Dosage: 10 MG, UNK
     Route: 065
  4. ENALAPRIL [Concomitant]
     Active Substance: ENALAPRIL
     Indication: HYPERTENSION
     Dosage: 20 MG, QD
     Route: 065
  5. TENSOMAX [Concomitant]
     Indication: HYPERTENSION
     Dosage: 30 MG, Q8H
     Route: 065
  6. VITAMINS NOS [Concomitant]
     Active Substance: VITAMINS
     Indication: PRODUCT USED FOR UNKNOWN INDICATION
  7. LOSARTAN. [Concomitant]
     Active Substance: LOSARTAN
     Indication: HYPERTENSION
     Dosage: 50 MG, Q12H
     Route: 065
  8. EXJADE [Suspect]
     Active Substance: DEFERASIROX
     Indication: TRANSFUSION
     Dosage: 1000 MG, QD
     Route: 048
     Dates: start: 20150322

REACTIONS (1)
  - Hypertensive crisis [Recovering/Resolving]

NARRATIVE: CASE EVENT DATE: 201505
